FAERS Safety Report 6576063-4 (Version None)
Quarter: 2010Q1

REPORT INFORMATION
  Report Type: 
  Country: None (occurrence: None)
  Receive Date: 20100209
  Receipt Date: 20100129
  Transmission Date: 20100710
  Serious: Yes (Other)
  Sender: FDA-Public Use
  Company Number: PHHY2009AU20338

PATIENT
  Sex: Female

DRUGS (4)
  1. FAMVIR [Suspect]
     Route: 048
  2. ACIMAX [Concomitant]
  3. STEROIDS NOS [Concomitant]
  4. FOLIC ACID [Concomitant]

REACTIONS (6)
  - BLISTER [None]
  - CONFUSIONAL STATE [None]
  - HALLUCINATION [None]
  - INSOMNIA [None]
  - JAUNDICE [None]
  - RASH [None]
